FAERS Safety Report 17143339 (Version 1)
Quarter: 2019Q4

REPORT INFORMATION
  Report Type: Spontaneous
  Country: FR (occurrence: FR)
  Receive Date: 20191212
  Receipt Date: 20191212
  Transmission Date: 20200122
  Serious: Yes (Hospitalization)
  Sender: FDA-Public Use
  Company Number: FR-TEVA-2019-FR-1149767

PATIENT
  Age: 70 Year
  Sex: Male
  Weight: 84 kg

DRUGS (16)
  1. PREGABALINE [Concomitant]
     Active Substance: PREGABALIN
     Route: 048
  2. CASPOFUNGINE (ACETATE DE) ((CHAMPIGNON/GLAREA LOZOYENSIS)) [Suspect]
     Active Substance: CASPOFUNGIN ACETATE
     Indication: ANTIBIOTIC PROPHYLAXIS
     Route: 042
     Dates: start: 20190918
  3. AMLODIPINE [Concomitant]
     Active Substance: AMLODIPINE BESYLATE
     Route: 048
     Dates: start: 20190924
  4. VANCOMYCINE [Concomitant]
     Active Substance: VANCOMYCIN
     Route: 042
     Dates: start: 20190916, end: 20190917
  5. GLICLAZIDE [Concomitant]
     Active Substance: GLICLAZIDE
     Route: 048
  6. IDARUBICINE (CHLORHYDRATE D^) [Concomitant]
     Active Substance: IDARUBICIN HYDROCHLORIDE
     Route: 042
     Dates: start: 20190911, end: 20190915
  7. PANTOPRAZOLE [Concomitant]
     Active Substance: PANTOPRAZOLE
     Route: 048
     Dates: start: 20190916
  8. CEFAZOLINE [Suspect]
     Active Substance: CEFAZOLIN SODIUM
     Indication: INFECTION
     Route: 042
     Dates: start: 20190916, end: 20190923
  9. DIFFU K, G?LULE [Concomitant]
     Active Substance: POTASSIUM CHLORIDE
     Route: 048
     Dates: start: 20190917
  10. CIPROFLOXACIN. [Suspect]
     Active Substance: CIPROFLOXACIN
     Indication: INFECTION
     Route: 048
     Dates: start: 20190923, end: 20190927
  11. POSACONAZOLE [Suspect]
     Active Substance: POSACONAZOLE
     Indication: INFECTION
     Route: 042
     Dates: start: 20190916, end: 20190919
  12. KARDEGIC [Concomitant]
     Active Substance: ASPIRIN DL-LYSINE
     Route: 048
  13. GAVISCON [Concomitant]
     Active Substance: ALUMINUM HYDROXIDE\MAGNESIUM CARBONATE
     Route: 048
  14. CYTARABINE. [Concomitant]
     Active Substance: CYTARABINE
     Route: 042
     Dates: start: 20190909, end: 20190915
  15. NEBIVOLOL. [Concomitant]
     Active Substance: NEBIVOLOL
     Route: 048
  16. MEROPENEM TRIHYDRATE [Suspect]
     Active Substance: MEROPENEM
     Indication: INFECTION
     Route: 042
     Dates: start: 20190923

REACTIONS (2)
  - Hyperbilirubinaemia [Recovering/Resolving]
  - Jaundice cholestatic [Recovering/Resolving]

NARRATIVE: CASE EVENT DATE: 20190919
